FAERS Safety Report 18397408 (Version 6)
Quarter: 2022Q4

REPORT INFORMATION
  Report Type: Report from Study
  Country: TH (occurrence: TH)
  Receive Date: 20201019
  Receipt Date: 20221001
  Transmission Date: 20230113
  Serious: Yes (Death, Other)
  Sender: FDA-Public Use
  Company Number: None

PATIENT
  Sex: Female
  Weight: 46.1 kg

DRUGS (29)
  1. ENTRESTO [Suspect]
     Active Substance: SACUBITRIL\VALSARTAN
     Indication: Cardiac failure
     Dosage: 0.5 DF, BID (200 MG HALF A TAB AFTER MEAL IN THE MORNING AND EVENING)
     Route: 048
  2. ENTRESTO [Suspect]
     Active Substance: SACUBITRIL\VALSARTAN
     Indication: Cardiac failure congestive
     Dosage: UNK
     Route: 048
  3. ENTRESTO [Suspect]
     Active Substance: SACUBITRIL\VALSARTAN
     Indication: Ejection fraction decreased
  4. DIGOXIN [Concomitant]
     Active Substance: DIGOXIN
     Indication: Product used for unknown indication
     Dosage: 0.25 DOSAGE FORM, QD
     Route: 048
  5. DIGOXIN [Concomitant]
     Active Substance: DIGOXIN
     Dosage: 0.25 DOSAGE FORM, QD (1 PC)
     Route: 048
  6. OMEPRAZOLE [Concomitant]
     Active Substance: OMEPRAZOLE
     Indication: Product used for unknown indication
     Dosage: 1 DOSAGE FORM, (2 AC ?)
     Route: 048
  7. SPIRONOLACTONE [Concomitant]
     Active Substance: SPIRONOLACTONE
     Indication: Product used for unknown indication
     Dosage: 0.5 DOSAGE FORM, QD (PC)
     Route: 048
  8. JANUVIA [Concomitant]
     Active Substance: SITAGLIPTIN PHOSPHATE
     Indication: Product used for unknown indication
     Dosage: 100 MG, UNKNOWN (1 TAB, 1 PC)
     Route: 065
  9. FUROSEMIDE [Concomitant]
     Active Substance: FUROSEMIDE
     Indication: Product used for unknown indication
     Dosage: 40 MG (? TAB PC M)
     Route: 048
  10. FUROSEMIDE [Concomitant]
     Active Substance: FUROSEMIDE
     Dosage: 1 DOSAGE FORM, QD (1 PC M)
     Route: 048
  11. VITAMINS [Concomitant]
     Active Substance: VITAMINS
     Indication: Product used for unknown indication
     Dosage: UNK (1 TAB, 2 PC)
     Route: 048
  12. NEUTAPIN [Concomitant]
     Indication: Product used for unknown indication
     Dosage: 0.25 DOSAGE FORM, QHS (PRN)
     Route: 048
  13. SIMVASTATIN [Concomitant]
     Active Substance: SIMVASTATIN
     Indication: Product used for unknown indication
     Dosage: 0.5 DOSAGE FORM, QD (PC E)
     Route: 048
  14. AMITRIPTYLINE [Concomitant]
     Active Substance: AMITRIPTYLINE
     Indication: Product used for unknown indication
     Dosage: 10 MG, PRN (1 TAB)
     Route: 048
  15. BISOPROLOL [Concomitant]
     Active Substance: BISOPROLOL
     Indication: Product used for unknown indication
     Dosage: 1 DOSAGE FORM, QD (1 PC)
     Route: 048
  16. BISOPROLOL [Concomitant]
     Active Substance: BISOPROLOL
     Dosage: 1 DOSAGE FORM, BID (2 PC)
     Route: 048
  17. MELATONIN [Concomitant]
     Active Substance: MELATONIN
     Indication: Product used for unknown indication
     Dosage: 2 MG, PRN (1 TAB DURING WAKE UP AND NIGHT)
     Route: 048
  18. WARFARIN [Concomitant]
     Active Substance: WARFARIN
     Indication: Product used for unknown indication
     Dosage: 2 MG, UNKNOWN (? TAB HS MONDAY - SATURDAY)
     Route: 048
  19. WARFARIN [Concomitant]
     Active Substance: WARFARIN
     Dosage: 3 MG, UNKNOWN (2 MG, UNKNOWN (1 TAB HS MONDAY - SATURDAY)
     Route: 065
  20. WARFARIN [Concomitant]
     Active Substance: WARFARIN
     Dosage: 2 MG, UNKNOWN (1/2 TAB HS SATURDAY-SUNDAY)
     Route: 048
  21. WARFARIN [Concomitant]
     Active Substance: WARFARIN
     Dosage: 3 MG, QHS (MONDAY-SATURDAY)
     Route: 048
  22. BETAHISTINE [Concomitant]
     Active Substance: BETAHISTINE
     Indication: Product used for unknown indication
     Dosage: 6 MG, UNKNOWN (1 TAB)
     Route: 065
  23. COLCHICINE [Concomitant]
     Active Substance: COLCHICINE
     Indication: Pain
     Dosage: 1 DOSAGE FORM, Q8H (PRN)
     Route: 048
  24. LORAZEPAM [Concomitant]
     Active Substance: LORAZEPAM
     Indication: Product used for unknown indication
     Dosage: 0.5 UNK, UNKNOWN (1 TAB, 1 HS OR PRN)
     Route: 048
  25. FERROUS FUMARATE [Concomitant]
     Active Substance: FERROUS FUMARATE
     Indication: Product used for unknown indication
     Dosage: 1 DOSAGE FORM, TID (3 PC)
     Route: 048
  26. ANXISET [Concomitant]
     Indication: Product used for unknown indication
     Dosage: 1 DOSAGE FORM, (1 PC, E)
     Route: 048
  27. CLONAZEPAM [Concomitant]
     Active Substance: CLONAZEPAM
     Indication: Product used for unknown indication
     Dosage: 0.5 DOSAGE FORM, QD (PRN)
     Route: 048
  28. TOLVAPTAN [Concomitant]
     Active Substance: TOLVAPTAN
     Indication: Product used for unknown indication
     Dosage: 0.25 DOSAGE FORM, QD (1 PC)
     Route: 048
  29. POTASSIUM CHLORIDE [Concomitant]
     Active Substance: POTASSIUM CHLORIDE
     Indication: Product used for unknown indication
     Dosage: 1 DOSAGE FORM, QD (PC)
     Route: 048

REACTIONS (12)
  - Death [Fatal]
  - International normalised ratio increased [Unknown]
  - Heart rate decreased [Unknown]
  - Blood glucose increased [Unknown]
  - Prothrombin time prolonged [Unknown]
  - Blood pressure systolic increased [Unknown]
  - Oxygen saturation decreased [Unknown]
  - Respiratory rate increased [Unknown]
  - Heart rate increased [Unknown]
  - Blood pressure diastolic decreased [Unknown]
  - Glomerular filtration rate decreased [Unknown]
  - Wrong technique in product usage process [Unknown]
